FAERS Safety Report 18354446 (Version 1)
Quarter: 2020Q4

REPORT INFORMATION
  Report Type: Spontaneous
  Country: US (occurrence: US)
  Receive Date: 20201006
  Receipt Date: 20201006
  Transmission Date: 20210114
  Serious: Yes (Hospitalization)
  Sender: FDA-Public Use
  Company Number: None

PATIENT
  Age: 81 Year
  Sex: Female

DRUGS (1)
  1. ACTEMRA ACTPEN [Suspect]
     Active Substance: TOCILIZUMAB
     Route: 058
     Dates: start: 201908

REACTIONS (4)
  - Escherichia infection [None]
  - Dehydration [None]
  - Localised infection [None]
  - Syncope [None]

NARRATIVE: CASE EVENT DATE: 20200624
